FAERS Safety Report 5079183-9 (Version None)
Quarter: 2006Q3

REPORT INFORMATION
  Report Type: 
  Country: None (occurrence: None)
  Receive Date: 20060814
  Receipt Date: 20060809
  Transmission Date: 20061208
  Serious: Yes (Hospitalization)
  Sender: FDA-Public Use
  Company Number: FR-GLAXOSMITHKLINE-B0433788A

PATIENT
  Age: 35 Year
  Sex: Female
  Weight: 75 kg

DRUGS (5)
  1. AUGMENTIN '125' [Suspect]
     Dosage: 2G PER DAY
     Route: 042
     Dates: start: 20050201, end: 20050201
  2. GELOFUSINE [Suspect]
     Dosage: 250ML PER DAY
     Route: 042
     Dates: start: 20050201, end: 20050201
  3. MIDAZOLAM HYDROCHLORIDE [Concomitant]
     Indication: ANAESTHESIA
     Route: 065
     Dates: start: 20050201, end: 20050201
  4. PROPOFOL [Concomitant]
     Indication: ANAESTHESIA
     Route: 065
     Dates: start: 20050201, end: 20050201
  5. ULTIVA [Concomitant]
     Indication: ANAESTHESIA
     Route: 065
     Dates: start: 20050201, end: 20050201

REACTIONS (6)
  - ANAPHYLACTOID REACTION [None]
  - ERYTHEMA [None]
  - HYPERSENSITIVITY [None]
  - HYPOTENSION [None]
  - OEDEMA [None]
  - TACHYCARDIA [None]
